FAERS Safety Report 5203229-8 (Version None)
Quarter: 2006Q4

REPORT INFORMATION
  Report Type: 
  Country: None (occurrence: None)
  Receive Date: 20061016
  Receipt Date: 20060126
  Transmission Date: 20070319
  Serious: Yes (Other)
  Sender: FDA-Public Use
  Company Number: 2006013225

PATIENT
  Age: 38 Year
  Sex: Male

DRUGS (2)
  1. NEURONTIN [Suspect]
     Indication: ILL-DEFINED DISORDER
     Dates: start: 20050901, end: 20051201
  2. CENTRUM PERFORMANCE (GINKGO BILOBA LEAF EXTRACT, MINERALS NOS, PANAX, [Suspect]
     Indication: ILL-DEFINED DISORDER
     Dates: start: 20050901, end: 20051201

REACTIONS (1)
  - CONVULSION [None]
